FAERS Safety Report 4952645-8 (Version None)
Quarter: 2006Q1

REPORT INFORMATION
  Report Type: 
  Country: None (occurrence: None)
  Receive Date: 20060320
  Receipt Date: 20060308
  Transmission Date: 20060701
  Serious: Yes (Hospitalization)
  Sender: FDA-Public Use
  Company Number: 2006AP000204

PATIENT
  Age: 74 Year
  Sex: Male

DRUGS (23)
  1. DILTIAZEM HYDROCHLORIDE [Suspect]
     Dosage: 25 MG:1 X IV
     Route: 042
  2. DILTIAZEM HYDROCHLORIDE [Suspect]
     Indication: ATRIAL FIBRILLATION
     Dosage: 30 MG; QID;PO; 120 MG;QID;PO
     Route: 048
  3. DILTIAZEM HYDROCHLORIDE [Suspect]
     Indication: ATRIAL FIBRILLATION
     Dosage: 30 MG; QID;PO; 120 MG;QID;PO
     Route: 048
  4. AMIODARONE HCL [Suspect]
     Indication: ATRIAL FIBRILLATION
     Dosage: 150 MG;1X;IV
     Route: 042
  5. CHLOROTHIAZIDE [Concomitant]
  6. SPIRONOLACTONE [Concomitant]
  7. ALLOPURINOL [Concomitant]
  8. ATORVASTATIN CALCIUM [Concomitant]
  9. FLUTICASONE PROPIONATE W/SALMETEROL [Concomitant]
  10. MOXIFLOXACIN HCL [Concomitant]
  11. FLUCONAZOLE [Concomitant]
  12. CYTARABINE [Concomitant]
  13. IDARUBICIN HCL [Concomitant]
  14. VANCOMYCIN [Concomitant]
  15. CEFEPIME [Concomitant]
  16. TOBRAMYCIN [Concomitant]
  17. MEROPENEM [Concomitant]
  18. VORICONAZOLE [Concomitant]
  19. SULFAMETHOXAZOLE + TRIMETHOPRIM [Concomitant]
  20. LOPERAMIDE [Concomitant]
  21. METRONIDAZOLE [Concomitant]
  22. DIGOXIN [Concomitant]
  23. LINEZOLID [Concomitant]

REACTIONS (9)
  - ABDOMINAL INFECTION [None]
  - BLOOD CREATININE INCREASED [None]
  - BLOOD CULTURE POSITIVE [None]
  - CHRONIC OBSTRUCTIVE PULMONARY DISEASE [None]
  - CONDITION AGGRAVATED [None]
  - ENTEROCOCCAL INFECTION [None]
  - ENTEROCOLITIS [None]
  - GASTROINTESTINAL HYPOMOTILITY [None]
  - OBSTRUCTION [None]
